FAERS Safety Report 14037607 (Version 1)
Quarter: 2017Q4

REPORT INFORMATION
  Report Type: Spontaneous
  Country: US (occurrence: US)
  Receive Date: 20171003
  Receipt Date: 20171003
  Transmission Date: 20180321
  Serious: Yes (Disabling)
  Sender: FDA-Public Use
  Company Number: None

PATIENT
  Sex: Male
  Weight: 123.75 kg

DRUGS (2)
  1. TOPAMAX [Suspect]
     Active Substance: TOPIRAMATE
     Indication: OVERWEIGHT
     Dosage: QUANTITY:1 TABLET(S);?
     Route: 048
     Dates: start: 20170822, end: 20170826
  2. FUROSEMIDE. [Concomitant]
     Active Substance: FUROSEMIDE

REACTIONS (1)
  - Tinnitus [None]

NARRATIVE: CASE EVENT DATE: 20170825
